FAERS Safety Report 15628806 (Version 2)
Quarter: 2019Q1

REPORT INFORMATION
  Report Type: Not Available
  Country: US (occurrence: US)
  Receive Date: 20181116
  Receipt Date: 20190201
  Transmission Date: 20190417
  Serious: No
  Sender: FDA-Public Use
  Company Number: US-NEUROCRINE BIOSCIENCES INC.-2018NBI03152

PATIENT
  Age: 25 Year
  Sex: Female

DRUGS (4)
  1. INGREZZA [Suspect]
     Active Substance: VALBENAZINE
     Dosage: 40 MG X2
     Route: 048
     Dates: start: 20181019, end: 201810
  2. INGREZZA [Suspect]
     Active Substance: VALBENAZINE
     Dosage: ONE IN AM AND ONE IN PM
     Route: 048
     Dates: start: 20181022
  3. CLONAZEPAM. [Concomitant]
     Active Substance: CLONAZEPAM
     Indication: DYSKINESIA
     Route: 048
     Dates: start: 20170516
  4. INGREZZA [Suspect]
     Active Substance: VALBENAZINE
     Indication: DYSKINESIA
     Route: 048
     Dates: start: 20170601, end: 20170915

REACTIONS (4)
  - Trismus [Recovered/Resolved]
  - Drooling [Recovered/Resolved]
  - Feeling abnormal [Recovered/Resolved]
  - Somnolence [Recovering/Resolving]

NARRATIVE: CASE EVENT DATE: 20181020
